FAERS Safety Report 25433626 (Version 1)
Quarter: 2025Q2

REPORT INFORMATION
  Report Type: Spontaneous
  Country: US (occurrence: None)
  Receive Date: 20250612
  Receipt Date: 20250612
  Transmission Date: 20250717
  Serious: Yes (Disabling)
  Sender: FDA-CTU
  Company Number: None

PATIENT
  Age: 62 Year
  Sex: Male

DRUGS (2)
  1. MEKINIST [Suspect]
     Active Substance: TRAMETINIB DIMETHYL SULFOXIDE
     Indication: Thyroid cancer
     Dosage: 1 MG QD
  2. TAFINLAR [Suspect]
     Active Substance: DABRAFENIB MESYLATE

REACTIONS (7)
  - Eye disorder [None]
  - Headache [None]
  - Pyrexia [None]
  - Pain [None]
  - Decreased appetite [None]
  - Renal disorder [None]
  - Therapy interrupted [None]
